FAERS Safety Report 4862217-1 (Version None)
Quarter: 2005Q4

REPORT INFORMATION
  Report Type: 
  Country: None (occurrence: None)
  Receive Date: 20051201
  Receipt Date: 20050812
  Transmission Date: 20060501
  Serious: No
  Sender: FDA-Public Use
  Company Number: 2005PV001169

PATIENT
  Age: 74 Year
  Sex: Female
  Weight: 47.6277 kg

DRUGS (9)
  1. BYETTA [Suspect]
     Indication: DIABETES MELLITUS NON-INSULIN-DEPENDENT
     Dosage: 5 MCG; BID; SC
     Route: 058
     Dates: start: 20050809
  2. AVANDIA [Concomitant]
  3. GLUCOPHAGE [Concomitant]
  4. FERROUS SULFATE TAB [Concomitant]
  5. MULTIVITAMIN [Concomitant]
  6. HYDROCHOLORTHIAZIDE [Concomitant]
  7. ZOCOR [Concomitant]
  8. LEXAPRO [Concomitant]
  9. LISINOPRIL [Concomitant]

REACTIONS (3)
  - BLOOD GLUCOSE INCREASED [None]
  - HEADACHE [None]
  - NAUSEA [None]
